FAERS Safety Report 13490302 (Version 1)
Quarter: 2017Q2

REPORT INFORMATION
  Report Type: Spontaneous
  Country: DE (occurrence: DE)
  Receive Date: 20170426
  Receipt Date: 20170426
  Transmission Date: 20170830
  Serious: Yes (Hospitalization, Other)
  Sender: FDA-Public Use
  Company Number: DE-IMPAX LABORATORIES, INC-2016-IPXL-00836

PATIENT
  Age: 29 Year
  Sex: Female

DRUGS (8)
  1. BUPROPION HYDROCHLORIDE SR [Suspect]
     Active Substance: BUPROPION HYDROCHLORIDE
     Indication: DEPRESSION
     Dosage: 300 MG, FOR ABOUT 3 TO 4MONTHS
     Route: 048
  2. PREGABALIN. [Suspect]
     Active Substance: PREGABALIN
     Indication: PRODUCT USED FOR UNKNOWN INDICATION
     Dosage: 300 MG, DAILY
     Route: 048
  3. PREGABALIN. [Suspect]
     Active Substance: PREGABALIN
     Dosage: 600 MG, DAILY
     Route: 048
  4. RIVAROXABAN [Concomitant]
     Active Substance: RIVAROXABAN
     Indication: THROMBOSIS
     Dosage: UNK
     Route: 065
  5. BUPROPION HYDROCHLORIDE SR [Suspect]
     Active Substance: BUPROPION HYDROCHLORIDE
     Dosage: 450 MG, DAILY
     Route: 048
  6. BUPROPION HYDROCHLORIDE SR [Suspect]
     Active Substance: BUPROPION HYDROCHLORIDE
     Dosage: 300 MG, 8/DAY
     Route: 042
  7. PREGABALIN. [Suspect]
     Active Substance: PREGABALIN
     Dosage: DAILY DOSE OF 2400 TO 3600 MG
     Route: 048
  8. AMPHETAMINE [Concomitant]
     Active Substance: AMPHETAMINE
     Indication: PRODUCT USED FOR UNKNOWN INDICATION
     Dosage: UNK
     Route: 065

REACTIONS (16)
  - Restless legs syndrome [Recovered/Resolved]
  - Seizure [Recovered/Resolved]
  - Wrong technique in product usage process [Unknown]
  - Intentional overdose [Recovered/Resolved]
  - Energy increased [Unknown]
  - Psychomotor hyperactivity [Recovered/Resolved]
  - Increased appetite [Recovered/Resolved]
  - Sleep disorder [Unknown]
  - Pineal gland cyst [Unknown]
  - Myalgia [Recovered/Resolved]
  - Transaminases increased [Recovered/Resolved]
  - Drug withdrawal syndrome [Unknown]
  - Pain in extremity [Recovered/Resolved]
  - Drug use disorder [Unknown]
  - Mood swings [Recovered/Resolved]
  - Delusion [Unknown]
